FAERS Safety Report 6134077-2 (Version None)
Quarter: 2009Q1

REPORT INFORMATION
  Report Type: 
  Country: None (occurrence: None)
  Receive Date: 20090326
  Receipt Date: 20090319
  Transmission Date: 20090719
  Serious: Yes (Other)
  Sender: FDA-Public Use
  Company Number: PHHY2009JP10467

PATIENT

DRUGS (1)
  1. SANDIMMUNE [Suspect]
     Indication: KAWASAKI'S DISEASE
     Route: 042

REACTIONS (3)
  - BLOOD POTASSIUM INCREASED [None]
  - DRUG LEVEL INCREASED [None]
  - URINE ABNORMALITY [None]
